FAERS Safety Report 13827522 (Version 1)
Quarter: 2017Q3

REPORT INFORMATION
  Report Type: Other
  Country: GB (occurrence: QA)
  Receive Date: 20170802
  Receipt Date: 20170802
  Transmission Date: 20171127
  Serious: Yes (Life-Threatening, Other)
  Sender: FDA-Public Use
  Company Number: QA-INTERNATIONAL MEDICATION SYSTEMS, LIMITED-2024099

PATIENT
  Age: 48 Year
  Sex: Male

DRUGS (1)
  1. EPINEPHRINE. [Suspect]
     Active Substance: EPINEPHRINE
     Indication: RECTAL HAEMORRHAGE

REACTIONS (1)
  - Drug ineffective [Recovered/Resolved]
